FAERS Safety Report 13388201 (Version 2)
Quarter: 2017Q3

REPORT INFORMATION
  Report Type: Spontaneous
  Country: US (occurrence: US)
  Receive Date: 20170330
  Receipt Date: 20170730
  Transmission Date: 20171127
  Serious: Yes (Other)
  Sender: FDA-Public Use
  Company Number: US-TEVA-749510ACC

PATIENT

DRUGS (19)
  1. SOMA [Concomitant]
     Active Substance: CARISOPRODOL
     Dosage: 1 QHS PRN
     Route: 048
  2. TIZANIDINE HCL [Concomitant]
     Active Substance: TIZANIDINE HYDROCHLORIDE
     Indication: MUSCLE SPASMS
     Dosage: 1 - 2 BID PRN
     Route: 048
  3. SOLUMEDOL [Concomitant]
     Dosage: 1000MG SOLR IV PER DAY X 3 DAY INFUSE OVER 1.5 TO 2 HOURS AS TOLERATED
     Route: 042
  4. COPAXONE [Concomitant]
     Active Substance: GLATIRAMER ACETATE
  5. ROBAXIN [Concomitant]
     Active Substance: METHOCARBAMOL
     Dosage: 1 DOSAGE FORMS DAILY;
     Route: 048
  6. BACLOFEN. [Suspect]
     Active Substance: BACLOFEN
     Dosage: 6 DOSAGE FORMS DAILY;
     Route: 048
  7. TECFIDERA [Suspect]
     Active Substance: DIMETHYL FUMARATE
     Dosage: 480 MILLIGRAM DAILY;
     Route: 048
     Dates: end: 20161020
  8. PRILOSEC [Concomitant]
     Active Substance: OMEPRAZOLE MAGNESIUM
     Dosage: 1 DOSAGE FORMS DAILY;
     Route: 048
  9. NEURONTIN [Concomitant]
     Active Substance: GABAPENTIN
     Dosage: 6 DOSAGE FORMS DAILY;
     Route: 048
  10. TRAMADOL HCL [Suspect]
     Active Substance: TRAMADOL HYDROCHLORIDE
     Dosage: 1 DOSAGE FORMS DAILY;
     Route: 048
  11. SOLUMEDOL [Concomitant]
     Dosage: 1000MG SOLR IV PER DAY X 3 DAY INFUSE OVER 2 HOURS
     Route: 042
  12. DULCOLAX STOOL SOFTNER [Concomitant]
     Dosage: 2 DOSAGE FORMS DAILY;
     Route: 048
  13. LIDODERM [Concomitant]
     Active Substance: LIDOCAINE
     Dosage: ON X 12 HOURS, OFF X 12 HOURS, UP TO THREE PATCHES AT A TIME
  14. TECFIDERA [Suspect]
     Active Substance: DIMETHYL FUMARATE
     Indication: MULTIPLE SCLEROSIS
     Dosage: 240 MILLIGRAM DAILY;
     Route: 048
     Dates: start: 201304
  15. AMPYRA [Suspect]
     Active Substance: DALFAMPRIDINE
     Dosage: 20 MILLIGRAM DAILY;
     Route: 048
  16. SENOKOT [Concomitant]
     Active Substance: SENNOSIDES
     Dosage: 4 DOSAGE FORMS DAILY;
     Route: 048
  17. LOTENSIN [Concomitant]
     Active Substance: BENAZEPRIL HYDROCHLORIDE
     Dosage: 1 DOSAGE FORMS DAILY;
     Route: 048
  18. HYDROCHLOROTHIAZID [Concomitant]
     Active Substance: HYDROCHLOROTHIAZIDE
     Dosage: 1 DOSAGE FORMS DAILY;
     Route: 048
  19. LIPITOR [Concomitant]
     Active Substance: ATORVASTATIN CALCIUM
     Dosage: 1 DOSAGE FORMS DAILY;
     Route: 048

REACTIONS (9)
  - General physical health deterioration [Unknown]
  - Fatigue [Unknown]
  - Anti-JC virus antibody index [Unknown]
  - Muscle spasticity [Unknown]
  - Insomnia [Unknown]
  - Neurogenic bladder [Unknown]
  - Sleep apnoea syndrome [Unknown]
  - Muscular weakness [Unknown]
  - Product quality issue [Unknown]
